FAERS Safety Report 7465223-6 (Version None)
Quarter: 2011Q2

REPORT INFORMATION
  Report Type: 
  Country: None (occurrence: None)
  Receive Date: 20110509
  Receipt Date: 20110505
  Transmission Date: 20111010
  Serious: Yes (Other)
  Sender: FDA-Public Use
  Company Number: PHFR2011GB02911

PATIENT
  Sex: Male

DRUGS (1)
  1. CLOZARIL [Suspect]
     Indication: SCHIZOPHRENIA
     Dosage: 12.5 MG, QD
     Route: 048
     Dates: start: 20110426

REACTIONS (4)
  - BLOOD PRESSURE FLUCTUATION [None]
  - DIZZINESS [None]
  - BLOOD PRESSURE DECREASED [None]
  - VISUAL IMPAIRMENT [None]
